FAERS Safety Report 9116308 (Version 1)
Quarter: 2013Q1

REPORT INFORMATION
  Report Type: Report from Study
  Country: BE (occurrence: BE)
  Receive Date: 20130225
  Receipt Date: 20130225
  Transmission Date: 20140127
  Serious: Yes (Hospitalization)
  Sender: FDA-Public Use
  Company Number: BE-EISAI INC-E2007-00796-CLI-BE

PATIENT
  Age: 30 Year
  Sex: Female
  Weight: 85 kg

DRUGS (7)
  1. E2007 (PERAMPANEL) [Suspect]
     Indication: EPILEPSY
     Dosage: DOUBLE BLIND CONVERSION PHASE
     Route: 048
     Dates: start: 20090910, end: 20091228
  2. E2007 (PERAMPANEL) [Suspect]
     Route: 048
     Dates: start: 20091229, end: 20130104
  3. TEGRETOL [Concomitant]
     Route: 048
     Dates: start: 200806
  4. LYRICA [Concomitant]
     Route: 048
     Dates: start: 2007
  5. CITALOPRAM [Concomitant]
     Indication: DEPRESSION
     Route: 048
  6. EFFONTIL [Concomitant]
     Route: 048
     Dates: start: 2005
  7. CLOPIXOL [Concomitant]
     Indication: DEPRESSION
     Dates: start: 20080225

REACTIONS (1)
  - Papillary thyroid cancer [Recovering/Resolving]
